FAERS Safety Report 4892010-5 (Version None)
Quarter: 2006Q1

REPORT INFORMATION
  Report Type: 
  Country: None (occurrence: None)
  Receive Date: 20060123
  Receipt Date: 20060118
  Transmission Date: 20060701
  Serious: Yes (Other)
  Sender: FDA-Public Use
  Company Number: DK-2005-001342

PATIENT
  Age: 39 Year
  Sex: Female
  Weight: 73 kg

DRUGS (1)
  1. YASMIN [Suspect]
     Dosage: 1 TAB(S), ORAL
     Route: 048
     Dates: start: 20040501, end: 20041101

REACTIONS (4)
  - CEREBRAL THROMBOSIS [None]
  - FACIAL PARESIS [None]
  - MULTIPLE SCLEROSIS [None]
  - SENSORY DISTURBANCE [None]
